FAERS Safety Report 24768098 (Version 1)
Quarter: 2024Q4

REPORT INFORMATION
  Report Type: Spontaneous
  Country: US (occurrence: US)
  Receive Date: 20241223
  Receipt Date: 20241223
  Transmission Date: 20250115
  Serious: Yes (Death, Other)
  Sender: COVIS PHARMA GMBH
  Company Number: US-Covis Pharma GmbH-2024COV01530

PATIENT
  Age: 68 Year
  Sex: Female

DRUGS (1)
  1. LANOXIN [Suspect]
     Active Substance: DIGOXIN

REACTIONS (2)
  - Completed suicide [Fatal]
  - Toxicity to various agents [Fatal]
